FAERS Safety Report 7753412-2 (Version None)
Quarter: 2011Q3

REPORT INFORMATION
  Report Type: 
  Country: None (occurrence: None)
  Receive Date: 20110915
  Receipt Date: 20110915
  Transmission Date: 20111222
  Serious: Yes (Other)
  Sender: FDA-Public Use
  Company Number: US-RB-028067-11

PATIENT
  Age: 80 Year
  Sex: Male

DRUGS (1)
  1. MUCINEX DM [Suspect]
     Route: 048
     Dates: start: 20110914

REACTIONS (1)
  - BLOOD GLUCOSE DECREASED [None]
